FAERS Safety Report 18397372 (Version 1)
Quarter: 2020Q4

REPORT INFORMATION
  Report Type: Spontaneous
  Country: US (occurrence: US)
  Receive Date: 20201019
  Receipt Date: 20201019
  Transmission Date: 20210114
  Serious: Yes (Other)
  Sender: FDA-Public Use
  Company Number: US-SA-2020SA286650

PATIENT

DRUGS (2)
  1. DUPIXENT [Suspect]
     Active Substance: DUPILUMAB
     Dosage: UNK
     Route: 065
  2. DUPIXENT [Suspect]
     Active Substance: DUPILUMAB
     Dosage: 200 MG
     Route: 065

REACTIONS (5)
  - Eyelid pain [Unknown]
  - Ocular vasculitis [Unknown]
  - Eyelid oedema [Unknown]
  - Vision blurred [Unknown]
  - Vitreous floaters [Unknown]
